FAERS Safety Report 8044140-7 (Version None)
Quarter: 2012Q1

REPORT INFORMATION
  Report Type: 
  Country: None (occurrence: None)
  Receive Date: 20120113
  Receipt Date: 20120110
  Transmission Date: 20120608
  Serious: Yes (Hospitalization, Disabling, Other)
  Sender: FDA-Public Use
  Company Number: PHEH2012US000981

PATIENT
  Sex: Female
  Weight: 25.9 kg

DRUGS (8)
  1. ASPIRIN [Concomitant]
  2. RED BLOOD CELLS [Concomitant]
  3. EXJADE [Suspect]
     Dosage: 625 MG, QD
     Route: 048
  4. KEPPRA [Concomitant]
  5. AMOXICILLIN [Concomitant]
  6. TEGRETOL [Concomitant]
  7. FOLIC ACID [Concomitant]
  8. AMITRIPTYLINE HCL [Concomitant]

REACTIONS (1)
  - CEREBRAL INFARCTION [None]
